FAERS Safety Report 5735441-3 (Version None)
Quarter: 2008Q2

REPORT INFORMATION
  Report Type: 
  Country: None (occurrence: None)
  Receive Date: 20080508
  Receipt Date: 20080508
  Transmission Date: 20081010
  Serious: Yes (Life-Threatening, Disabling)
  Sender: FDA-Public Use
  Company Number: None

PATIENT
  Age: 59 Year
  Sex: Female
  Weight: 71.1 kg

DRUGS (1)
  1. WARFARIN SODIUM [Suspect]
     Dosage: 4 MG DAILY PO
     Route: 048
     Dates: start: 20070308, end: 20070313

REACTIONS (1)
  - INTERNATIONAL NORMALISED RATIO INCREASED [None]
